FAERS Safety Report 10424939 (Version 1)
Quarter: 2014Q3

REPORT INFORMATION
  Report Type: Spontaneous
  Country: IT (occurrence: IT)
  Receive Date: 20140902
  Receipt Date: 20140902
  Transmission Date: 20150326
  Serious: Yes (Other)
  Sender: FDA-Public Use
  Company Number: IT-JNJFOC-20140819295

PATIENT

DRUGS (1)
  1. RISPERIDONE. [Suspect]
     Active Substance: RISPERIDONE
     Indication: PRODUCT USED FOR UNKNOWN INDICATION
     Route: 065

REACTIONS (15)
  - Weight increased [Unknown]
  - Menstruation irregular [Unknown]
  - Blood prolactin increased [Unknown]
  - Somnolence [Unknown]
  - Psychomotor retardation [Unknown]
  - Sedation [Unknown]
  - Convulsion [Unknown]
  - Anuria [Unknown]
  - Gynaecomastia [Unknown]
  - Dyskinesia [Unknown]
  - Alopecia [Unknown]
  - Erectile dysfunction [Unknown]
  - Rash [Unknown]
  - Increased appetite [Unknown]
  - Galactorrhoea [Unknown]
